FAERS Safety Report 25769125 (Version 1)
Quarter: 2025Q3

REPORT INFORMATION
  Report Type: Spontaneous
  Country: CN (occurrence: CN)
  Receive Date: 20250905
  Receipt Date: 20250905
  Transmission Date: 20251021
  Serious: Yes (Other)
  Sender: AMGEN
  Company Number: CN-AMGEN-CHNSP2025173448

PATIENT
  Age: 57 Year
  Sex: Female
  Weight: 58 kg

DRUGS (2)
  1. KYPROLIS [Suspect]
     Active Substance: CARFILZOMIB
     Indication: Neoplasm malignant
     Dosage: 43 MILLIGRAM, QD, DAILY 1, 2, 8, 9, 15, AND 16 FOR THREE MONTHS
     Route: 040
     Dates: start: 20250808, end: 20250809
  2. DEXAMETHASONE [Concomitant]
     Active Substance: DEXAMETHASONE
     Indication: Neoplasm malignant
     Dosage: 20 MILLIGRAM, QD, DAILY 1, 2, 8, 9, 15, AND 16) FOR THREE MONTHS
     Route: 065
     Dates: start: 20250808

REACTIONS (1)
  - Myelosuppression [Unknown]

NARRATIVE: CASE EVENT DATE: 20250809
